FAERS Safety Report 15368538 (Version 2)
Quarter: 2018Q4

REPORT INFORMATION
  Report Type: Report from Study
  Country: None (occurrence: US)
  Receive Date: 20180910
  Receipt Date: 20181022
  Transmission Date: 20190204
  Serious: Yes (Other)
  Sender: FDA-Public Use
  Company Number: US-ABBVIE-17K-163-2179101-00

PATIENT
  Age: 56 Year
  Sex: Female

DRUGS (4)
  1. METHOTREXATE. [Concomitant]
     Active Substance: METHOTREXATE
     Indication: PRODUCT USED FOR UNKNOWN INDICATION
     Dates: end: 2018
  2. HUMIRA [Suspect]
     Active Substance: ADALIMUMAB
     Indication: RHEUMATOID ARTHRITIS
     Route: 058
     Dates: end: 2018
  3. HUMIRA [Suspect]
     Active Substance: ADALIMUMAB
     Route: 058
     Dates: start: 201808
  4. METHOTREXATE. [Concomitant]
     Active Substance: METHOTREXATE
     Dates: start: 201808

REACTIONS (20)
  - Procedural pain [Unknown]
  - Vertigo [Unknown]
  - Fall [Recovering/Resolving]
  - Pain in extremity [Recovering/Resolving]
  - Joint injury [Unknown]
  - Neck pain [Not Recovered/Not Resolved]
  - Thyroid mass [Recovering/Resolving]
  - Fall [Recovering/Resolving]
  - Paraesthesia oral [Recovering/Resolving]
  - Blood magnesium decreased [Unknown]
  - Blood calcium decreased [Unknown]
  - Infection [Recovered/Resolved]
  - Fatigue [Recovering/Resolving]
  - Balance disorder [Unknown]
  - Upper limb fracture [Recovered/Resolved]
  - Arthralgia [Recovering/Resolving]
  - Restlessness [Recovering/Resolving]
  - Paraesthesia [Recovering/Resolving]
  - Dizziness [Unknown]
  - Musculoskeletal pain [Not Recovered/Not Resolved]

NARRATIVE: CASE EVENT DATE: 2014
